APPROVED DRUG PRODUCT: ULTRAVIST (PHARMACY BULK)
Active Ingredient: IOPROMIDE
Strength: 49.9%
Dosage Form/Route: INJECTABLE;INJECTION
Application: N021425 | Product #003
Applicant: BAYER HEALTHCARE PHARMACEUTICALS INC
Approved: Mar 12, 2004 | RLD: Yes | RS: No | Type: DISCN